FAERS Safety Report 13189804 (Version 1)
Quarter: 2017Q1

REPORT INFORMATION
  Report Type: Spontaneous
  Country: CH (occurrence: CH)
  Receive Date: 20170206
  Receipt Date: 20170206
  Transmission Date: 20170428
  Serious: Yes (Hospitalization)
  Sender: FDA-Public Use
  Company Number: CH-TEVA-734889ISR

PATIENT
  Age: 82 Year
  Sex: Male
  Weight: 70.4 kg

DRUGS (8)
  1. KEFZOL [Suspect]
     Active Substance: CEFAZOLIN SODIUM
     Dosage: 4 GRAM DAILY; POWDER FOR INJECTION IM IV IN VIALS
     Route: 041
     Dates: start: 20170102, end: 20170104
  2. EPRIL SUBMITE TABLETTEN [Suspect]
     Active Substance: ENALAPRIL MALEATE
     Dosage: 10 MILLIGRAM DAILY; THERAPY IN USE FOR YEARS
     Route: 048
     Dates: start: 2013, end: 20161224
  3. BILOL [Concomitant]
     Active Substance: BISOPROLOL
     Dosage: 2.5 MILLIGRAM DAILY;
     Route: 048
  4. ATORVASTATIN PFIZER [Concomitant]
     Active Substance: ATORVASTATIN
     Dosage: 40 MILLIGRAM DAILY;
     Route: 048
  5. LORAMET [Concomitant]
     Active Substance: LORMETAZEPAM
     Dosage: 1 MILLIGRAM DAILY;
     Route: 048
  6. NEXIUM [Concomitant]
     Active Substance: ESOMEPRAZOLE MAGNESIUM
     Dosage: 40 MILLIGRAM DAILY;
     Route: 048
  7. ASPIRIN CARDIO [Concomitant]
     Active Substance: ASPIRIN
     Dosage: 100 MILLIGRAM DAILY;
     Route: 048
  8. DANCOR [Concomitant]
     Active Substance: NICORANDIL
     Dosage: 40 MILLIGRAM DAILY;
     Route: 048

REACTIONS (5)
  - Hypersensitivity [Recovered/Resolved]
  - Angioedema [Recovered/Resolved]
  - Pruritus [Recovered/Resolved]
  - Respiratory distress [Recovered/Resolved]
  - Rash erythematous [Recovered/Resolved]

NARRATIVE: CASE EVENT DATE: 20170104
